FAERS Safety Report 8245226-4 (Version None)
Quarter: 2012Q1

REPORT INFORMATION
  Report Type: 
  Country: None (occurrence: None)
  Receive Date: 20120329
  Receipt Date: 20120323
  Transmission Date: 20120608
  Serious: Yes (Death, Hospitalization, Other)
  Sender: FDA-Public Use
  Company Number: PHHY2012BR026551

PATIENT
  Sex: Male
  Weight: 80 kg

DRUGS (13)
  1. ASPIRIN [Concomitant]
     Dosage: 100 MG, DAILY
     Route: 048
  2. CHLORTHALIDONE [Concomitant]
     Dosage: 25 MG, UNK
     Route: 048
  3. METFORMIN HCL [Concomitant]
     Indication: DIABETES MELLITUS
     Dosage: 850 MG, TID
     Route: 048
  4. NPH INSULIN [Concomitant]
     Indication: DIABETES MELLITUS
     Dosage: 1 DF (APPLICATION), BID (MORNIN AND NIGHT)
  5. CALTREN [Concomitant]
     Dosage: UNK
     Route: 048
  6. DOXAZOSIN MESYLATE [Concomitant]
     Dosage: 4 MG, QD (BEFORE GOING TO BED)
     Route: 048
  7. EUPROSTATIN [Concomitant]
     Indication: MICTURITION DISORDER
     Dosage: UNK
     Route: 048
  8. ALBACORE [Concomitant]
     Dosage: UNK
     Route: 048
  9. METOPROLOL SUCCINATE [Concomitant]
     Dosage: 25 MG, QD (AT 10 AM)
     Route: 048
  10. ALLOPURINOL [Concomitant]
     Dosage: 1 DF, DAILY
  11. ISOSORBIDE DINITRATE [Concomitant]
     Dosage: 20 MG, Q12H
     Route: 048
  12. EXFORGE [Suspect]
     Indication: HYPERTENSION
     Dosage: 1 DF(320/10 MG), DAILY
     Route: 048
     Dates: start: 20100617
  13. FUROSEMIDE [Concomitant]
     Dosage: UNK
     Route: 048

REACTIONS (7)
  - BLOOD GLUCOSE DECREASED [None]
  - RENAL FAILURE [None]
  - DECREASED APPETITE [None]
  - GAIT DISTURBANCE [None]
  - SKIN DISCOLOURATION [None]
  - BACK PAIN [None]
  - BACK DISORDER [None]
